FAERS Safety Report 14545577 (Version 1)
Quarter: 2018Q1

REPORT INFORMATION
  Report Type: Report from Study
  Country: US (occurrence: US)
  Receive Date: 20180219
  Receipt Date: 20180219
  Transmission Date: 20180509
  Serious: Yes (Death)
  Sender: FDA-Public Use
  Company Number: US-CIPLA LTD.-2018US05372

PATIENT

DRUGS (1)
  1. WARFARIN [Suspect]
     Active Substance: WARFARIN
     Indication: THROMBOSIS PROPHYLAXIS
     Dosage: UNK, ALL DOSES WITH A GOAL INTERNATIONAL NORMALIZED RATIO RANGING FROM 1.5 TO 3
     Route: 065

REACTIONS (1)
  - Death [Fatal]
